FAERS Safety Report 8618886-3 (Version None)
Quarter: 2012Q3

REPORT INFORMATION
  Report Type: 
  Country: None (occurrence: None)
  Receive Date: 20120824
  Receipt Date: 20120816
  Transmission Date: 20120928
  Serious: Yes (Hospitalization)
  Sender: FDA-Public Use
  Company Number: GB-SANOFI-AVENTIS-2011SA073105

PATIENT
  Sex: Female

DRUGS (37)
  1. ASPIRIN [Concomitant]
     Dates: start: 20090501
  2. SACCHAROMYCES BOULARDII [Concomitant]
     Dates: start: 20090101
  3. METOLAZONE [Concomitant]
     Dates: start: 20090101
  4. MULTI-VITAMINS [Concomitant]
  5. VITAMIN D [Concomitant]
     Dates: start: 20090101
  6. POTASSIUM CHLORIDE [Suspect]
     Route: 048
     Dates: start: 20090701
  7. FUROSEMIDE [Suspect]
     Route: 065
  8. HYDROCODONE BITARTRATE + ACETAMINOPHEN [Concomitant]
     Dosage: 5/500 MG
  9. LEVOTHYROXINE SODIUM [Concomitant]
     Dates: start: 20090101
  10. PSYLLIUM [Concomitant]
     Dates: start: 20090101
  11. OMEPRAZOLE [Concomitant]
     Dates: start: 20090501
  12. PREDNISONE TAB [Suspect]
     Route: 048
  13. DICYCLOMINE HYDROCHLORIDE [Suspect]
     Route: 048
     Dates: start: 20090501
  14. METAXALONE [Suspect]
     Dosage: PRN
     Route: 048
  15. ACETAMINOPHEN [Concomitant]
     Dates: start: 20090101
  16. EZETIMIBE [Concomitant]
  17. METOPROLOL SUCCINATE [Concomitant]
  18. DICYCLOMINE HYDROCHLORIDE [Suspect]
     Route: 048
     Dates: start: 20090701, end: 20090801
  19. SUCRALFATE [Suspect]
     Route: 048
  20. LORAZEPAM [Suspect]
     Route: 048
     Dates: start: 20090501
  21. FLUTICASONE PROPIONATE/SALMETEROL [Suspect]
     Dosage: INHALER, 500/50 MCG, 1 PUFF BID
     Route: 054
     Dates: start: 20090513
  22. ESOMEPRAZOLE SODIUM [Concomitant]
     Dates: start: 20090501
  23. LEVALBUTEROL HYDROCHLORIDE [Concomitant]
     Dates: start: 20090101
  24. MEMANTINE HCL [Concomitant]
     Dates: start: 20090101
  25. PHENOXYBENZAMINE HYDROCHLORIDE [Concomitant]
     Dates: start: 20090101
  26. POTASSIUM CHLORIDE [Suspect]
     Route: 048
     Dates: start: 20090901
  27. DIGOXIN [Suspect]
     Route: 048
  28. DIPHENOXYLATE HCL + ATROPINE SULFATE [Suspect]
     Dosage: PRN
     Route: 048
  29. METOPROLOL TARTRATE [Concomitant]
     Dates: start: 20090101
  30. LORAZEPAM [Suspect]
     Indication: SLEEP DISORDER
     Dosage: 0.5-1.5 MG. PRN
     Route: 048
  31. ROSUVASTATIN [Concomitant]
  32. TERIPARATIDE [Concomitant]
     Dosage: 750MCG/3ML
     Dates: start: 20090101
  33. DIGOXIN [Suspect]
     Route: 048
  34. CARISOPRODOL [Suspect]
     Dosage: PRN
     Route: 065
  35. FENTANYL [Concomitant]
     Dosage: PATCH
     Dates: start: 20090101
  36. AMLODIPINE [Concomitant]
  37. CALCIUM/VITAMIN D [Concomitant]

REACTIONS (15)
  - DEHYDRATION [None]
  - HALLUCINATION, VISUAL [None]
  - FATIGUE [None]
  - DELIRIUM [None]
  - VISUAL IMPAIRMENT [None]
  - CONSTIPATION [None]
  - DECREASED APPETITE [None]
  - PSEUDODEMENTIA [None]
  - CONFUSIONAL STATE [None]
  - DISORIENTATION [None]
  - URINARY TRACT INFECTION [None]
  - AGITATION [None]
  - WEIGHT DECREASED [None]
  - DEPRESSION [None]
  - INSOMNIA [None]
